FAERS Safety Report 26171318 (Version 1)
Quarter: 2025Q4

REPORT INFORMATION
  Report Type: Spontaneous
  Country: CN (occurrence: CN)
  Receive Date: 20251217
  Receipt Date: 20251217
  Transmission Date: 20260118
  Serious: Yes (Hospitalization, Other)
  Sender: BRISTOL-MYERS SQUIBB COMPANY
  Company Number: CN-BRISTOL-MYERS SQUIBB COMPANY-2025-168453

PATIENT
  Age: 69 Year
  Sex: Male
  Weight: 51.5 kg

DRUGS (13)
  1. NIVOLUMAB [Suspect]
     Active Substance: NIVOLUMAB
     Indication: Gastric cancer
     Route: 042
     Dates: start: 20250306
  2. NIVOLUMAB [Suspect]
     Active Substance: NIVOLUMAB
     Route: 042
     Dates: start: 20250407
  3. NIVOLUMAB [Suspect]
     Active Substance: NIVOLUMAB
     Route: 042
     Dates: start: 20250503, end: 20250527
  4. ABRAXANE [Suspect]
     Active Substance: PACLITAXEL
     Indication: Gastric cancer
  5. ETOPOSIDE [Suspect]
     Active Substance: ETOPOSIDE
     Indication: Gastric cancer
     Dosage: CYCLE 1
     Route: 042
  6. ETOPOSIDE [Suspect]
     Active Substance: ETOPOSIDE
     Dosage: CYCLE 2
     Route: 042
  7. ETOPOSIDE [Suspect]
     Active Substance: ETOPOSIDE
     Dosage: CYCLE 2-4
     Dates: start: 20250503, end: 20250527
  8. CISPLATIN [Suspect]
     Active Substance: CISPLATIN
     Indication: Gastric cancer
  9. CISPLATIN [Suspect]
     Active Substance: CISPLATIN
  10. CISPLATIN [Suspect]
     Active Substance: CISPLATIN
     Dates: start: 20250503, end: 20250527
  11. CARBOPLATIN [Suspect]
     Active Substance: CARBOPLATIN
     Indication: Gastric cancer
  12. CARBOPLATIN [Suspect]
     Active Substance: CARBOPLATIN
  13. CARBOPLATIN [Suspect]
     Active Substance: CARBOPLATIN

REACTIONS (2)
  - Immune-mediated enterocolitis [Recovering/Resolving]
  - Off label use [Unknown]

NARRATIVE: CASE EVENT DATE: 20250607
